FAERS Safety Report 12736775 (Version 1)
Quarter: 2016Q3

REPORT INFORMATION
  Report Type: Spontaneous
  Country: GB (occurrence: GB)
  Receive Date: 20160912
  Receipt Date: 20160912
  Transmission Date: 20161109
  Serious: Yes (Hospitalization)
  Sender: FDA-Public Use
  Company Number: GB-TEVA-678266ACC

PATIENT
  Age: 75 Year
  Sex: Male
  Weight: 70 kg

DRUGS (5)
  1. ETHANOL [Suspect]
     Active Substance: ALCOHOL
     Indication: PRODUCT USED FOR UNKNOWN INDICATION
     Dosage: OVERDOSE: AMOUNT UNKNOWN
     Route: 048
     Dates: start: 20160706, end: 20160706
  2. DIAZEPAM. [Suspect]
     Active Substance: DIAZEPAM
     Indication: ANXIETY
     Dosage: 2 MG THREE TIMES DAILY AS REQUIRED
     Route: 048
  3. BRINTELLIX [Suspect]
     Active Substance: VORTIOXETINE HYDROBROMIDE
     Dosage: OVERDOSE: UNKNOWN NUMBER OF 5 MG TABLETS
     Route: 048
     Dates: start: 20160706, end: 20160706
  4. DIAZEPAM. [Suspect]
     Active Substance: DIAZEPAM
     Indication: PRODUCT USED FOR UNKNOWN INDICATION
     Dosage: OVERDOSE: AMOUNT UNKNOWN
     Route: 048
     Dates: start: 20160706, end: 20160707
  5. BRINTELLIX [Suspect]
     Active Substance: VORTIOXETINE HYDROBROMIDE
     Indication: DEPRESSION
     Dosage: 5 MG DAILY
     Route: 048
     Dates: start: 20160627, end: 20160705

REACTIONS (2)
  - Suicide attempt [Recovered/Resolved]
  - Intentional overdose [Recovered/Resolved]

NARRATIVE: CASE EVENT DATE: 20160706
